FAERS Safety Report 25742653 (Version 1)
Quarter: 2025Q3

REPORT INFORMATION
  Report Type: Spontaneous
  Country: BR (occurrence: BR)
  Receive Date: 20250830
  Receipt Date: 20250830
  Transmission Date: 20251021
  Serious: Yes (Hospitalization)
  Sender: TEVA
  Company Number: BR-TEVA-VS-3359910

PATIENT
  Age: 39 Year
  Sex: Female

DRUGS (3)
  1. COPAXONE [Suspect]
     Active Substance: GLATIRAMER ACETATE
     Indication: Multiple sclerosis
     Route: 065
     Dates: start: 2018, end: 2020
  2. COPAXONE [Suspect]
     Active Substance: GLATIRAMER ACETATE
     Route: 065
     Dates: start: 20250801, end: 20250806
  3. ATORVASTATIN [Concomitant]
     Active Substance: ATORVASTATIN
     Indication: Blood cholesterol

REACTIONS (8)
  - Eye pain [Unknown]
  - Injection site pain [Recovered/Resolved]
  - Vision blurred [Unknown]
  - Treatment noncompliance [Unknown]
  - Influenza like illness [Unknown]
  - Cough [Unknown]
  - Malaise [Unknown]
  - Chills [Unknown]

NARRATIVE: CASE EVENT DATE: 20200101
